FAERS Safety Report 9768033 (Version 1)
Quarter: 2013Q4

REPORT INFORMATION
  Report Type: Spontaneous
  Country: CZ (occurrence: CZ)
  Receive Date: 20131217
  Receipt Date: 20131217
  Transmission Date: 20140711
  Serious: Yes (Hospitalization, Other)
  Sender: FDA-Public Use
  Company Number: CZ-SA-2013SA127739

PATIENT
  Age: 68 Year
  Sex: Male
  Weight: 69 kg

DRUGS (9)
  1. TAXOTERE [Suspect]
     Indication: PROSTATE CANCER
     Dosage: DOSAGE 20 MG/ML DOSE:20 MILLIGRAM(S)/MILLILITRE
     Route: 042
     Dates: start: 20131125, end: 20131125
  2. RANITAL [Concomitant]
     Dosage: DOSAGE 20 MG/ML
     Route: 042
  3. PREDNISONE ^LECIVA^ [Concomitant]
     Dosage: 1-0-1
     Route: 048
  4. DEXAMETHASONE [Concomitant]
     Dosage: 16 MG/ F1/ 1 100 ML
  5. OMEPRAZOLE [Concomitant]
     Dosage: 1-0-1
  6. GRANISETRON [Concomitant]
     Route: 042
  7. HELICID ^ZENTIVA^ [Concomitant]
     Route: 048
  8. NORMAL SALINE [Concomitant]
  9. DITHIADEN [Concomitant]
     Route: 042

REACTIONS (2)
  - Respiratory distress [Recovered/Resolved]
  - Chest discomfort [Recovered/Resolved]
